FAERS Safety Report 5430558-5 (Version None)
Quarter: 2007Q3

REPORT INFORMATION
  Report Type: 
  Country: None (occurrence: None)
  Receive Date: 20070731
  Receipt Date: 20070506
  Transmission Date: 20080115
  Serious: No
  Sender: FDA-Public Use
  Company Number: US200705002366

PATIENT
  Age: 60 Year
  Sex: Female

DRUGS (4)
  1. BYETTA [Suspect]
     Indication: DIABETES MELLITUS
     Dosage: 5 UG/ 2/D, SUBCUTANEOUS
     Route: 058
     Dates: start: 20070506
  2. INSULIN (INSULIN) [Concomitant]
  3. CIPRO [Concomitant]
  4. MACROBID [Concomitant]

REACTIONS (1)
  - BLOOD GLUCOSE INCREASED [None]
